FAERS Safety Report 22121457 (Version 2)
Quarter: 2023Q2

REPORT INFORMATION
  Report Type: Report from Study
  Country: US (occurrence: US)
  Receive Date: 20230321
  Receipt Date: 20230410
  Transmission Date: 20230722
  Serious: No
  Sender: FDA-Public Use
  Company Number: US-BIOVITRUM-2022-US-10993

PATIENT
  Age: 70 Year
  Sex: Female

DRUGS (3)
  1. KINERET [Suspect]
     Active Substance: ANAKINRA
     Indication: Still^s disease
     Dosage: 100MG/0.67ML?FREQUENCY ONCE DAILY
  2. KINERET [Suspect]
     Active Substance: ANAKINRA
     Dosage: 100MG/0.67ML?FREQUENCY TWICE DAILY
     Dates: start: 201907
  3. KINERET [Suspect]
     Active Substance: ANAKINRA
     Dosage: 100MG/0.67ML?FREQUENCY TWICE DAILY
     Route: 058
     Dates: start: 20190709

REACTIONS (8)
  - Intentional product misuse [Not Recovered/Not Resolved]
  - Injection site urticaria [Recovered/Resolved]
  - Injection site pain [Recovered/Resolved]
  - Injection site swelling [Recovered/Resolved]
  - Product leakage [Unknown]
  - Product closure issue [Unknown]
  - Iron deficiency [Unknown]
  - Feeling abnormal [Unknown]

NARRATIVE: CASE EVENT DATE: 20190709
